FAERS Safety Report 9331775 (Version 5)
Quarter: 2014Q1

REPORT INFORMATION
  Report Type: Spontaneous
  Country: US (occurrence: US)
  Receive Date: 20130605
  Receipt Date: 20140205
  Transmission Date: 20141002
  Serious: Yes (Other)
  Sender: FDA-Public Use
  Company Number: US-BAYER-2013-053170

PATIENT
  Age: 84 Year
  Sex: Male

DRUGS (1)
  1. STIVARGA [Suspect]
     Indication: COLORECTAL CANCER METASTATIC
     Dosage: 80 MG, DAILY
     Route: 048
     Dates: start: 20130406, end: 20140128

REACTIONS (13)
  - Rectal haemorrhage [Not Recovered/Not Resolved]
  - Dysstasia [None]
  - Pain in extremity [None]
  - Burning sensation [None]
  - Blood pressure increased [None]
  - Erythema [None]
  - Folliculitis [None]
  - Increased upper airway secretion [None]
  - Rash [Not Recovered/Not Resolved]
  - Skin disorder [Not Recovered/Not Resolved]
  - Skin exfoliation [Not Recovered/Not Resolved]
  - Benign neoplasm of skin [Not Recovered/Not Resolved]
  - Drug ineffective [None]
